FAERS Safety Report 13101311 (Version 2)
Quarter: 2017Q1

REPORT INFORMATION
  Report Type: Spontaneous
  Country: US (occurrence: US)
  Receive Date: 20170110
  Receipt Date: 20170112
  Transmission Date: 20170428
  Serious: No
  Sender: FDA-Public Use
  Company Number: US-BAYER-2017-004778

PATIENT
  Age: 72 Year
  Sex: Male
  Weight: 80.27 kg

DRUGS (3)
  1. ALEVE [Suspect]
     Active Substance: NAPROXEN SODIUM
     Dosage: 2 DF, BID
     Dates: start: 20170109
  2. ALEVE [Suspect]
     Active Substance: NAPROXEN SODIUM
     Indication: PAIN
     Dosage: 2 DF, BID
     Dates: start: 2015
  3. PERCOCET [Concomitant]
     Active Substance: ACETAMINOPHEN\OXYCODONE HYDROCHLORIDE

REACTIONS (5)
  - Product use issue [Unknown]
  - Medical device monitoring error [Unknown]
  - Contraindicated device used [Unknown]
  - Device use issue [Unknown]
  - Somnolence [Unknown]

NARRATIVE: CASE EVENT DATE: 20170109
